FAERS Safety Report 13770147 (Version 1)
Quarter: 2017Q3

REPORT INFORMATION
  Report Type: Other
  Country: KR (occurrence: KR)
  Receive Date: 20170719
  Receipt Date: 20170719
  Transmission Date: 20171127
  Serious: Yes (Hospitalization)
  Sender: FDA-Public Use
  Company Number: KR-B. BRAUN MEDICAL INC.-2023496

PATIENT
  Age: 44 Year
  Sex: Male

DRUGS (4)
  1. BUPIVACAINE. [Suspect]
     Active Substance: BUPIVACAINE
     Route: 008
  2. TRIAMCINOLONE ACETONIDE. [Suspect]
     Active Substance: TRIAMCINOLONE ACETONIDE
  3. SODIUM CHLORIDE. [Suspect]
     Active Substance: SODIUM CHLORIDE
  4. HYALURONIDASE [Suspect]
     Active Substance: HYALURONIDASE

REACTIONS (2)
  - Cauda equina syndrome [Recovered/Resolved with Sequelae]
  - Product use issue [Recovered/Resolved with Sequelae]
